FAERS Safety Report 4631969-8 (Version None)
Quarter: 2005Q2

REPORT INFORMATION
  Report Type: 
  Country: None (occurrence: None)
  Receive Date: 20050411
  Receipt Date: 20040227
  Transmission Date: 20051028
  Serious: Yes (Death, Life-Threatening, Other)
  Sender: FDA-Public Use
  Company Number: 200410651JP

PATIENT
  Age: 76 Year
  Sex: Female
  Weight: 33.3 kg

DRUGS (6)
  1. TAXOTERE [Suspect]
     Indication: GASTRIC CANCER
     Route: 041
     Dates: start: 20040218, end: 20040218
  2. ANTINEOPLASTIC AND IMMUNOSUPPRESSIVE AGENTS [Suspect]
     Indication: GASTRIC CANCER
     Route: 048
     Dates: start: 20040218, end: 20040220
  3. SOLDEM 3A [Concomitant]
     Route: 041
     Dates: start: 20040218, end: 20040220
  4. GASTER [Concomitant]
     Indication: PROPHYLAXIS AGAINST GASTROINTESTINAL ULCER
     Dosage: DOSE: 3A
     Route: 041
     Dates: start: 20040221, end: 20040328
  5. LAC B [Concomitant]
     Indication: GASTROENTERITIS
     Route: 048
     Dates: start: 20040303, end: 20040316
  6. LAC B [Concomitant]
     Indication: PROPHYLAXIS
     Route: 048
     Dates: start: 20040303, end: 20040316

REACTIONS (19)
  - ANAEMIA [None]
  - BLOOD ALBUMIN DECREASED [None]
  - BLOOD ALKALINE PHOSPHATASE INCREASED [None]
  - BLOOD CALCIUM DECREASED [None]
  - BLOOD POTASSIUM DECREASED [None]
  - BLOOD PRESSURE INCREASED [None]
  - CEREBRAL INFARCTION [None]
  - DECUBITUS ULCER [None]
  - DEPRESSED LEVEL OF CONSCIOUSNESS [None]
  - HAEMOGLOBIN DECREASED [None]
  - LYMPHOCYTE COUNT DECREASED [None]
  - MALIGNANT NEOPLASM PROGRESSION [None]
  - PARALYSIS [None]
  - PLATELET COUNT DECREASED [None]
  - PNEUMONIA [None]
  - PROTEIN TOTAL DECREASED [None]
  - PYREXIA [None]
  - SPEECH DISORDER [None]
  - WHITE BLOOD CELL COUNT DECREASED [None]
